FAERS Safety Report 4608626-7 (Version None)
Quarter: 2005Q1

REPORT INFORMATION
  Report Type: 
  Country: None (occurrence: None)
  Receive Date: 20050311
  Receipt Date: 20050311
  Transmission Date: 20050727
  Serious: Yes (Life-Threatening)
  Sender: FDA-Public Use
  Company Number: None

PATIENT
  Sex: Female

DRUGS (2)
  1. CEFAZOLIN [Suspect]
     Indication: ANTIBACTERIAL PROPHYLAXIS
     Dosage: 1 GM  ONE DOSE INTRAVENOUS
     Route: 042
     Dates: start: 20040319, end: 20040319
  2. GENERAL ANESTHETIC [Suspect]

REACTIONS (2)
  - BLOOD PRESSURE DECREASED [None]
  - OXYGEN SATURATION DECREASED [None]
